FAERS Safety Report 4431257-9 (Version None)
Quarter: 2004Q3

REPORT INFORMATION
  Report Type: 
  Country: None (occurrence: None)
  Receive Date: 20040823
  Receipt Date: 20040823
  Transmission Date: 20050211
  Serious: Yes (Other)
  Sender: FDA-Public Use
  Company Number: None

PATIENT
  Age: 75 Year
  Sex: Male
  Weight: 84.8226 kg

DRUGS (2)
  1. KAOPECTATE  STANDARD  UPJOHN OR PFIZER [Suspect]
     Indication: NAUSEA
     Dosage: 15CC  UP TO QID  ORAL
     Route: 048
     Dates: start: 19990101, end: 20040822
  2. PEPTO BISMOL [Suspect]
     Indication: NAUSEA
     Dosage: 15CC  UP TO QID  ORAL
     Route: 048
     Dates: start: 19990101, end: 20040822

REACTIONS (1)
  - MEDICATION ERROR [None]
